FAERS Safety Report 20602254 (Version 5)
Quarter: 2022Q2

REPORT INFORMATION
  Report Type: Spontaneous
  Country: FR (occurrence: FR)
  Receive Date: 20220316
  Receipt Date: 20220422
  Transmission Date: 20220721
  Serious: Yes (Other)
  Sender: FDA-Public Use
  Company Number: FR-BAYER-2022A038271

PATIENT
  Age: 42 Year
  Sex: Female

DRUGS (1)
  1. MIRENA [Suspect]
     Active Substance: LEVONORGESTREL
     Dosage: 20?G/DAY
     Route: 015
     Dates: start: 20150302, end: 20220228

REACTIONS (3)
  - Device breakage [None]
  - Device expulsion [Recovered/Resolved]
  - Complication of device removal [None]

NARRATIVE: CASE EVENT DATE: 20220228
